FAERS Safety Report 5630445-3 (Version None)
Quarter: 2008Q1

REPORT INFORMATION
  Report Type: 
  Country: None (occurrence: None)
  Receive Date: 20080219
  Receipt Date: 20080208
  Transmission Date: 20080703
  Serious: Yes (Other)
  Sender: FDA-Public Use
  Company Number: US-ROCHE-546392

PATIENT
  Age: 9 Year
  Sex: Male
  Weight: 45.4 kg

DRUGS (2)
  1. TAMIFLU [Suspect]
     Route: 048
     Dates: start: 20080204, end: 20080208
  2. TYLENOL (CAPLET) [Concomitant]

REACTIONS (1)
  - DELIRIUM [None]
